FAERS Safety Report 8066947-2 (Version None)
Quarter: 2012Q1

REPORT INFORMATION
  Report Type: 
  Country: None (occurrence: None)
  Receive Date: 20120124
  Receipt Date: 20120118
  Transmission Date: 20120608
  Serious: Yes (Hospitalization, Other)
  Sender: FDA-Public Use
  Company Number: US-MERCK-1110USA03839

PATIENT
  Age: 77 Year
  Sex: Female
  Weight: 60 kg

DRUGS (8)
  1. VITAMIN B (UNSPECIFIED) [Concomitant]
     Route: 065
     Dates: start: 19900101
  2. NEXIUM [Concomitant]
     Route: 065
     Dates: end: 20080101
  3. PROTONIX [Concomitant]
     Route: 065
     Dates: end: 20080101
  4. CALCIUM (UNSPECIFIED) [Concomitant]
     Route: 065
     Dates: start: 19900101
  5. VITAMINS (UNSPECIFIED) [Concomitant]
     Route: 065
     Dates: start: 19900101
  6. ASCORBIC ACID [Concomitant]
     Route: 065
     Dates: start: 19900101
  7. FOSAMAX [Suspect]
     Indication: OSTEOPOROSIS
     Route: 048
     Dates: start: 20020401, end: 20090501
  8. PREMARIN [Concomitant]
     Indication: HORMONE THERAPY
     Route: 048

REACTIONS (7)
  - HEAD INJURY [None]
  - LACUNAR INFARCTION [None]
  - HYPERTENSION [None]
  - FEMUR FRACTURE [None]
  - CEREBROVASCULAR ACCIDENT [None]
  - PELVIC FRACTURE [None]
  - FALL [None]
